FAERS Safety Report 6875792-2 (Version None)
Quarter: 2010Q3

REPORT INFORMATION
  Report Type: 
  Country: None (occurrence: None)
  Receive Date: 20100727
  Receipt Date: 20071112
  Transmission Date: 20110219
  Serious: Yes (Hospitalization, Other)
  Sender: FDA-Public Use
  Company Number: US-PFIZER INC-2006134005

PATIENT
  Sex: Female
  Weight: 61.2 kg

DRUGS (7)
  1. CELEBREX [Suspect]
     Indication: PAIN
     Dates: start: 20000925
  2. CELEBREX [Suspect]
     Indication: FIBROMYALGIA
  3. CELEBREX [Suspect]
     Indication: RHEUMATOID ARTHRITIS
  4. VIOXX [Suspect]
     Indication: FIBROMYALGIA
     Dates: start: 20021018
  5. PLAQUENIL [Concomitant]
     Dates: start: 20021018, end: 20041201
  6. METHOTREXATE [Concomitant]
     Dates: start: 20030122, end: 20040819
  7. ARAVA [Concomitant]
     Dates: start: 20030108, end: 20040819

REACTIONS (3)
  - DEPRESSION [None]
  - INSOMNIA [None]
  - MYOCARDIAL INFARCTION [None]
